FAERS Safety Report 9353236 (Version 1)
Quarter: 2013Q2

REPORT INFORMATION
  Report Type: Spontaneous
  Country: US (occurrence: US)
  Receive Date: 20130618
  Receipt Date: 20130618
  Transmission Date: 20140414
  Serious: Yes (Other)
  Sender: FDA-Public Use
  Company Number: US-PFIZER INC-2013179977

PATIENT
  Age: 61 Year
  Sex: Male
  Weight: 79.37 kg

DRUGS (2)
  1. VIAGRA [Suspect]
     Indication: ERECTILE DYSFUNCTION
     Dosage: 100 MG, AS NEEDED
     Dates: start: 20130501
  2. LISINOPRIL [Concomitant]
     Indication: HYPERTENSION
     Dosage: 5 MG DAILY

REACTIONS (1)
  - Erection increased [Not Recovered/Not Resolved]
